FAERS Safety Report 18184563 (Version 3)
Quarter: 2020Q3

REPORT INFORMATION
  Report Type: Spontaneous
  Country: US (occurrence: US)
  Receive Date: 20200824
  Receipt Date: 20200827
  Transmission Date: 20201103
  Serious: Yes (Hospitalization, Other)
  Sender: FDA-Public Use
  Company Number: US-ROCHE-2657410

PATIENT
  Sex: Female
  Weight: 61.74 kg

DRUGS (4)
  1. XARELTO [Concomitant]
     Active Substance: RIVAROXABAN
     Route: 048
     Dates: start: 20200731
  2. ASPIRIN. [Concomitant]
     Active Substance: ASPIRIN
     Route: 048
  3. PEGASYS [Suspect]
     Active Substance: PEGINTERFERON ALFA-2A
     Indication: POLYCYTHAEMIA VERA
     Route: 058
     Dates: start: 2018
  4. ATENOLOL. [Concomitant]
     Active Substance: ATENOLOL
     Route: 048

REACTIONS (11)
  - Nausea [Unknown]
  - Lactic acidosis [Unknown]
  - Chills [Recovered/Resolved]
  - Intentional product use issue [Unknown]
  - Pyrexia [Recovered/Resolved]
  - Pneumocystis test positive [Unknown]
  - Sepsis [Unknown]
  - Vomiting [Unknown]
  - Off label use [Unknown]
  - Urinary tract infection [Unknown]
  - Atrial fibrillation [Unknown]

NARRATIVE: CASE EVENT DATE: 201803
